FAERS Safety Report 11708483 (Version 1)
Quarter: 2015Q4

REPORT INFORMATION
  Report Type: Spontaneous
  Country: US (occurrence: US)
  Receive Date: 20151104
  Receipt Date: 20151104
  Transmission Date: 20160304
  Serious: No
  Sender: FDA-Public Use
  Company Number: US-ELI_LILLY_AND_COMPANY-US201108005766

PATIENT
  Age: 78 Year
  Sex: Female

DRUGS (1)
  1. FORTEO [Suspect]
     Active Substance: TERIPARATIDE
     Indication: OSTEOPOROSIS
     Dosage: UNK, QD
     Dates: start: 201105, end: 20110807

REACTIONS (13)
  - Hypoaesthesia [Unknown]
  - Paraesthesia [Unknown]
  - Dizziness postural [Unknown]
  - Limb discomfort [Unknown]
  - Pain in extremity [Unknown]
  - Fall [Unknown]
  - Joint injury [Unknown]
  - Vertigo [Unknown]
  - Back pain [Unknown]
  - Fatigue [Unknown]
  - Crush injury [Unknown]
  - Myalgia [Unknown]
  - Pain [Unknown]

NARRATIVE: CASE EVENT DATE: 201106
